FAERS Safety Report 25008022 (Version 2)
Quarter: 2025Q1

REPORT INFORMATION
  Report Type: Report from Study
  Country: KR (occurrence: KR)
  Receive Date: 20250225
  Receipt Date: 20250312
  Transmission Date: 20250409
  Serious: Yes (Hospitalization)
  Sender: EMD SERONO INC
  Company Number: KR-Merck Healthcare KGaA-2025008871

PATIENT
  Age: 75 Year
  Sex: Male
  Weight: 56 kg

DRUGS (6)
  1. BAVENCIO [Suspect]
     Active Substance: AVELUMAB
     Indication: Transitional cell carcinoma
  2. DULACKHAN EASY [Concomitant]
     Indication: Constipation
     Dosage: 1 PKG
     Dates: start: 20240529
  3. PLAVIX [Concomitant]
     Active Substance: CLOPIDOGREL BISULFATE
     Indication: Angina pectoris
     Dates: start: 2024
  4. DIOVAN [Concomitant]
     Active Substance: VALSARTAN
     Indication: Angina pectoris
     Dates: start: 2024
  5. LIPITOR [Concomitant]
     Active Substance: ATORVASTATIN CALCIUM
     Indication: Angina pectoris
     Dates: start: 2024
  6. GASMOTIN [LEVOSULPIRIDE] [Concomitant]
     Indication: Dyspepsia
     Dates: start: 2024

REACTIONS (1)
  - Diplopia [Recovered/Resolved]

NARRATIVE: CASE EVENT DATE: 20240522
